FAERS Safety Report 21305671 (Version 1)
Quarter: 2022Q3

REPORT INFORMATION
  Report Type: Spontaneous
  Country: US (occurrence: US)
  Receive Date: 20220908
  Receipt Date: 20220908
  Transmission Date: 20221026
  Serious: No
  Sender: FDA-Public Use
  Company Number: US-STRIDES ARCOLAB LIMITED-2022SP010563

PATIENT

DRUGS (1)
  1. AMANTADINE [Suspect]
     Active Substance: AMANTADINE
     Indication: Craniocerebral injury
     Dosage: 20 MILLIGRAM PER DAY (0.7 MG/KG/DAY)
     Route: 065

REACTIONS (2)
  - Agitation [Unknown]
  - Off label use [Unknown]
